FAERS Safety Report 6263994-8 (Version None)
Quarter: 2009Q3

REPORT INFORMATION
  Report Type: 
  Country: None (occurrence: None)
  Receive Date: 20090710
  Receipt Date: 20090701
  Transmission Date: 20100115
  Serious: Yes (Hospitalization)
  Sender: FDA-Public Use
  Company Number: JP-ASTRAZENECA-2008AP06540

PATIENT
  Age: 19 Year
  Sex: Male
  Weight: 92 kg

DRUGS (2)
  1. ANAPEINE INJECTION [Suspect]
     Indication: NERVE BLOCK
     Dosage: 10 ML OF 7.5 MG/ML
     Route: 053
     Dates: start: 20070411, end: 20070411
  2. ANAPEINE INJECTION [Suspect]
     Dosage: 10 ML OF 7.5 MG/ML
     Route: 053
     Dates: start: 20070411, end: 20070411

REACTIONS (1)
  - CLONIC CONVULSION [None]
